FAERS Safety Report 21734455 (Version 10)
Quarter: 2025Q2

REPORT INFORMATION
  Report Type: Report from Study
  Country: US (occurrence: US)
  Receive Date: 20221215
  Receipt Date: 20250506
  Transmission Date: 20250717
  Serious: Yes (Other)
  Sender: TAKEDA
  Company Number: US-TAKEDA-2022TUS074023

PATIENT
  Age: 71 Year
  Sex: Female
  Weight: 70.3 kg

DRUGS (31)
  1. HUMAN IMMUNOGLOBULIN G [Suspect]
     Active Substance: HUMAN IMMUNOGLOBULIN G
     Indication: Immunodeficiency common variable
     Dosage: 30 GRAM, Q4WEEKS
     Dates: start: 20200406
  2. BACTRIM [Suspect]
     Active Substance: SULFAMETHOXAZOLE\TRIMETHOPRIM
     Indication: Product used for unknown indication
     Dates: start: 20240806, end: 20240806
  3. DIPHENHYDRAMINE HYDROCHLORIDE [Concomitant]
     Active Substance: DIPHENHYDRAMINE HYDROCHLORIDE
  4. ACETAMINOPHEN [Concomitant]
     Active Substance: ACETAMINOPHEN
  5. PNEUMOVAX 23 [Concomitant]
     Active Substance: PNEUMOCOCCAL VACCINE, POLYVALENT 23
  6. ACETAMINOPHEN\HYDROCODONE [Concomitant]
     Active Substance: ACETAMINOPHEN\HYDROCODONE
  7. EPINEPHRINE [Concomitant]
     Active Substance: EPINEPHRINE
  8. SODIUM CHLORIDE [Concomitant]
     Active Substance: SODIUM CHLORIDE
  9. TIMOLOL MALEATE [Concomitant]
     Active Substance: TIMOLOL MALEATE
  10. FLUCELVAX QUADRIVALENT 2017/2018 (INFLUENZA A VIRUS A/DARWIN/11/2021 ( [Concomitant]
     Active Substance: INFLUENZA A VIRUS A/DARWIN/11/2021 (H3N2) ANTIGEN (MDCK CELL DERIVED, PROPIOLACTONE INACTIVATED)\INF
  11. FLUBLOK QUADRIVALENT NOS [Concomitant]
     Active Substance: INFLUENZA VIRUS VACCINE
  12. ZYRTEC [Concomitant]
     Active Substance: CETIRIZINE HYDROCHLORIDE
  13. FIBERCON [Concomitant]
     Active Substance: CALCIUM POLYCARBOPHIL
  14. ALPHA LIPOIC ACID [Concomitant]
     Active Substance: .ALPHA.-LIPOIC ACID
  15. BIOTIN [Concomitant]
     Active Substance: BIOTIN
  16. LATANOPROST [Concomitant]
     Active Substance: LATANOPROST
  17. METAMUCIL [Concomitant]
     Active Substance: PLANTAGO SEED
  18. MODERNA COVID-19 VACCINE [Concomitant]
     Active Substance: ELASOMERAN
  19. BENADRYL [Concomitant]
     Active Substance: DIPHENHYDRAMINE HYDROCHLORIDE
  20. Lmx [Concomitant]
  21. CEPHALEXIN [Concomitant]
     Active Substance: CEPHALEXIN
  22. MESALAMINE [Concomitant]
     Active Substance: MESALAMINE
  23. HERBALS\PLANTAGO OVATA SEED COAT [Concomitant]
     Active Substance: HERBALS\PLANTAGO OVATA SEED COAT
  24. PEPTO-BISMOL [Concomitant]
     Active Substance: BISMUTH SUBSALICYLATE
  25. VITAMIN D3 [Concomitant]
     Active Substance: CHOLECALCIFEROL
  26. Omega [Concomitant]
  27. B complex with c [Concomitant]
  28. VITAMIN K [Concomitant]
     Active Substance: PHYTONADIONE
  29. EPIPEN [Concomitant]
     Active Substance: EPINEPHRINE
  30. TRELEGY ELLIPTA [Concomitant]
     Active Substance: FLUTICASONE FUROATE\UMECLIDINIUM BROMIDE\VILANTEROL TRIFENATATE
  31. ASPIRIN [Concomitant]
     Active Substance: ASPIRIN

REACTIONS (23)
  - Hand fracture [Unknown]
  - Mastoiditis [Unknown]
  - Gastroenteritis norovirus [Unknown]
  - Myringitis [Unknown]
  - Tinnitus [Unknown]
  - Ear infection [Unknown]
  - Fungal infection [Unknown]
  - Urinary tract infection [Unknown]
  - Viral infection [Unknown]
  - Body height abnormal [Unknown]
  - Cough [Unknown]
  - Chest discomfort [Unknown]
  - Dyspnoea [Unknown]
  - Nasal congestion [Unknown]
  - Muscle spasms [Unknown]
  - Fatigue [Unknown]
  - Dizziness [Unknown]
  - Pyrexia [Unknown]
  - Myalgia [Unknown]
  - Headache [Unknown]
  - Chest pain [Unknown]
  - Heart rate increased [Unknown]
  - Balance disorder [Unknown]

NARRATIVE: CASE EVENT DATE: 20241216
